FAERS Safety Report 4784139-7 (Version None)
Quarter: 2005Q3

REPORT INFORMATION
  Report Type: 
  Country: None (occurrence: None)
  Receive Date: 20050930
  Receipt Date: 20050720
  Transmission Date: 20060218
  Serious: No
  Sender: FDA-Public Use
  Company Number: US-GLAXOSMITHKLINE-A0567053A

PATIENT
  Age: 91 Year
  Sex: Female

DRUGS (6)
  1. FLOVENT [Suspect]
     Indication: ASTHMA
     Route: 055
  2. ADVAIR DISKUS 100/50 [Suspect]
     Indication: ASTHMA
     Route: 055
  3. LOTREL [Concomitant]
     Route: 065
  4. SYNTHROID [Concomitant]
  5. LASIX [Concomitant]
     Route: 065
  6. CITRUCEL [Concomitant]
     Route: 065

REACTIONS (1)
  - NAUSEA [None]
